FAERS Safety Report 26166082 (Version 1)
Quarter: 2025Q4

REPORT INFORMATION
  Report Type: Spontaneous
  Country: CN (occurrence: CN)
  Receive Date: 20251216
  Receipt Date: 20251216
  Transmission Date: 20260119
  Serious: Yes (Other)
  Sender: RANBAXY
  Company Number: CN-SUN PHARMACEUTICAL INDUSTRIES INC-2025R1-533030

PATIENT
  Age: 54 Year
  Sex: Male
  Weight: 44 kg

DRUGS (6)
  1. DOXORUBICIN [Suspect]
     Active Substance: DOXORUBICIN
     Indication: Colon cancer
     Dosage: UNK (20 MG)
     Route: 065
     Dates: start: 202311
  2. BEVACIZUMAB [Suspect]
     Active Substance: BEVACIZUMAB
     Indication: Colon cancer
     Dosage: UNK (5 MG/KG OVER 1 TO 1.5 HOURS)
     Route: 013
  3. OXALIPLATIN [Suspect]
     Active Substance: OXALIPLATIN
     Indication: Colon cancer
     Dosage: UNK (85 MG/M2 OVER 2 HOURS)
     Route: 013
  4. LEUCOVORIN [Suspect]
     Active Substance: LEUCOVORIN\LEUCOVORIN CALCIUM
     Indication: Colon cancer
     Dosage: UNK (400 MG/M2 OVER 2 HOURS)
     Route: 013
  5. FLUOROURACIL [Suspect]
     Active Substance: FLUOROURACIL
     Indication: Colon cancer
     Dosage: UNK (400 MG/M2 OVER 15 MINUTES)
     Route: 013
  6. FLUOROURACIL [Suspect]
     Active Substance: FLUOROURACIL
     Dosage: UNK (2400 MG/M2 OVER 46 HOURS)
     Route: 013

REACTIONS (1)
  - Therapy partial responder [Unknown]
